FAERS Safety Report 8559480-2 (Version None)
Quarter: 2012Q3

REPORT INFORMATION
  Report Type: 
  Country: None (occurrence: None)
  Receive Date: 20120802
  Receipt Date: 20120723
  Transmission Date: 20120928
  Serious: Yes (Other)
  Sender: FDA-Public Use
  Company Number: ES-MILLENNIUM PHARMACEUTICALS, INC.-2011-00477

PATIENT

DRUGS (5)
  1. VELCADE [Suspect]
     Dosage: 2.42 MG, UNK
     Route: 042
     Dates: start: 20101122, end: 20110101
  2. METFORMIN HYDROCHLORIDE [Concomitant]
     Indication: DIABETES MELLITUS
  3. ACYCLOVIR [Concomitant]
     Indication: PROPHYLAXIS
     Dosage: UNK
     Dates: start: 20111122
  4. VELCADE [Suspect]
     Indication: MULTIPLE MYELOMA
     Dosage: UNK
     Route: 042
     Dates: start: 20080101, end: 20090101
  5. VELCADE [Suspect]
     Dosage: 2.06 MG, UNK
     Route: 042
     Dates: start: 20110104, end: 20110114

REACTIONS (1)
  - SKIN LESION [None]
